FAERS Safety Report 7410391-5 (Version None)
Quarter: 2011Q2

REPORT INFORMATION
  Report Type: 
  Country: None (occurrence: None)
  Receive Date: 20110412
  Receipt Date: 20110405
  Transmission Date: 20111010
  Serious: Yes (Other)
  Sender: FDA-Public Use
  Company Number: US-US-EMD SERONO, INC.-7052434

PATIENT
  Sex: Female

DRUGS (4)
  1. REBIF [Suspect]
     Indication: PRODUCT USED FOR UNKNOWN INDICATION
     Route: 058
     Dates: start: 20101004
  2. ALEVE [Concomitant]
     Indication: BACK PAIN
  3. ASPIRIN [Concomitant]
  4. UNSPECIFIED CHOLESTEROL MEDICATION [Concomitant]
     Indication: BLOOD CHOLESTEROL

REACTIONS (3)
  - NERVE INJURY [None]
  - BLOOD CHOLESTEROL INCREASED [None]
  - PAIN IN EXTREMITY [None]
